FAERS Safety Report 18474879 (Version 1)
Quarter: 2020Q4

REPORT INFORMATION
  Report Type: Spontaneous
  Country: PL (occurrence: PL)
  Receive Date: 20201106
  Receipt Date: 20201106
  Transmission Date: 20210114
  Serious: Yes (Other)
  Sender: FDA-Public Use
  Company Number: PL-AMGEN-POLSP2020176935

PATIENT
  Age: 72 Year
  Sex: Female

DRUGS (5)
  1. DOCETAXEL. [Concomitant]
     Active Substance: DOCETAXEL
     Indication: INVASIVE LOBULAR BREAST CARCINOMA
     Dosage: UNK UNK, CYCLICAL
  2. TRASTUZUMAB. [Suspect]
     Active Substance: TRASTUZUMAB
     Indication: INVASIVE LOBULAR BREAST CARCINOMA
     Dosage: UNK UNK, CYCLICAL
     Route: 065
  3. PERTUZUMAB. [Suspect]
     Active Substance: PERTUZUMAB
     Indication: INVASIVE LOBULAR BREAST CARCINOMA
     Dosage: UNK, CYCLICAL
     Route: 065
  4. LETROZOLE. [Concomitant]
     Active Substance: LETROZOLE
     Indication: INVASIVE LOBULAR BREAST CARCINOMA
  5. LETROZOLE. [Concomitant]
     Active Substance: LETROZOLE
     Indication: HORMONE THERAPY

REACTIONS (5)
  - Polyneuropathy [Recovered/Resolved]
  - Off label use [Unknown]
  - Metastasis [Recovered/Resolved]
  - Condition aggravated [Recovered/Resolved]
  - Colon neoplasm [Recovered/Resolved]
